FAERS Safety Report 6094200-5 (Version None)
Quarter: 2009Q1

REPORT INFORMATION
  Report Type: 
  Country: None (occurrence: None)
  Receive Date: 20090224
  Receipt Date: 20090224
  Transmission Date: 20090719
  Serious: Yes (Death)
  Sender: FDA-Public Use
  Company Number: None

PATIENT
  Age: 84 Year
  Sex: Female
  Weight: 63.5036 kg

DRUGS (4)
  1. EXELON [Suspect]
     Indication: MEMORY IMPAIRMENT
     Dosage: CUTANEOUS
     Route: 003
     Dates: start: 20090112, end: 20090124
  2. METFORMIN [Concomitant]
  3. CALCIUM [Concomitant]
  4. .. [Concomitant]

REACTIONS (3)
  - FALL [None]
  - HAEMORRHAGIC STROKE [None]
  - UNRESPONSIVE TO STIMULI [None]
